FAERS Safety Report 12080375 (Version 1)
Quarter: 2016Q1

REPORT INFORMATION
  Report Type: Spontaneous
  Country: FR (occurrence: FR)
  Receive Date: 20160216
  Receipt Date: 20160216
  Transmission Date: 20160526
  Serious: Yes (Hospitalization)
  Sender: FDA-Public Use
  Company Number: FR-PFIZER INC-2016079963

PATIENT
  Age: 69 Year
  Sex: Male

DRUGS (11)
  1. BRICANYL [Concomitant]
     Active Substance: TERBUTALINE SULFATE
  2. FUROSEMIDE. [Concomitant]
     Active Substance: FUROSEMIDE
  3. ZYVOXID [Suspect]
     Active Substance: LINEZOLID
     Indication: LUNG INFECTION
     Dosage: 600 MG, 2X/DAY
     Route: 048
     Dates: start: 20151213, end: 201601
  4. ATROVENT [Concomitant]
     Active Substance: IPRATROPIUM BROMIDE
  5. COUMADINE [Interacting]
     Active Substance: WARFARIN SODIUM
     Dosage: 5 MG, DAILY
     Route: 048
  6. BACTRIM [Interacting]
     Active Substance: SULFAMETHOXAZOLE\TRIMETHOPRIM
     Indication: LUNG INFECTION
     Dosage: 800 MG, DAILY
     Route: 048
     Dates: start: 20151213, end: 201601
  7. DUPHALAC [Concomitant]
     Active Substance: LACTULOSE
  8. PANTOPRAZOLE [Concomitant]
     Active Substance: PANTOPRAZOLE SODIUM
  9. KALEORID [Concomitant]
     Active Substance: POTASSIUM CHLORIDE
  10. INEXIUM /01479302/ [Concomitant]
     Active Substance: ESOMEPRAZOLE MAGNESIUM
  11. LACTULOSE. [Concomitant]
     Active Substance: LACTULOSE

REACTIONS (4)
  - Drug interaction [Unknown]
  - Haemobilia [Unknown]
  - Melaena [Unknown]
  - Haemorrhagic anaemia [Recovering/Resolving]

NARRATIVE: CASE EVENT DATE: 20160109
